FAERS Safety Report 10595182 (Version 1)
Quarter: 2014Q4

REPORT INFORMATION
  Report Type: Spontaneous
  Country: JP (occurrence: None)
  Receive Date: 20141118
  Receipt Date: 20141118
  Transmission Date: 20150529
  Serious: Yes (Hospitalization)
  Sender: FDA-Public Use
  Company Number: AXC-2014-000696

PATIENT
  Age: 34 Year
  Sex: Male

DRUGS (4)
  1. REMICADE [Suspect]
     Active Substance: INFLIXIMAB
     Indication: COLITIS ULCERATIVE
     Dosage: 1 IN 1 D
     Route: 042
     Dates: start: 20101210
  2. PREDNISOLONE. [Suspect]
     Active Substance: PREDNISOLONE
     Indication: PRODUCT USED FOR UNKNOWN INDICATION
     Route: 042
     Dates: start: 2010
  3. URSODEOXYCHOLIC ACID [Suspect]
     Active Substance: URSODIOL
     Indication: HEPATIC FUNCTION ABNORMAL
     Route: 048
  4. PREDNISOLONE. [Suspect]
     Active Substance: PREDNISOLONE
     Indication: PRODUCT USED FOR UNKNOWN INDICATION
     Dosage: 1 IN 1 D, TAPERED
     Route: 048
     Dates: start: 2010, end: 201111

REACTIONS (5)
  - Adenocarcinoma of colon [None]
  - Iron deficiency anaemia [None]
  - Haematochezia [None]
  - Diarrhoea [None]
  - Pruritus [None]

NARRATIVE: CASE EVENT DATE: 201007
